FAERS Safety Report 9934700 (Version 1)
Quarter: 2014Q1

REPORT INFORMATION
  Report Type: Spontaneous
  Country: DE (occurrence: DE)
  Receive Date: 20140228
  Receipt Date: 20140228
  Transmission Date: 20141002
  Serious: Yes (Other)
  Sender: FDA-Public Use
  Company Number: DE-TEVA-463702GER

PATIENT
  Age: 40 Year
  Sex: Female
  Weight: 66 kg

DRUGS (10)
  1. KATADOLON S LONG [Suspect]
     Indication: PSORIATIC ARTHROPATHY
     Dosage: 100 MILLIGRAM DAILY;
     Route: 048
     Dates: start: 20120305
  2. PREDNISOLONE [Suspect]
     Dosage: 20 MILLIGRAM DAILY;
     Route: 048
     Dates: start: 20120305, end: 2012
  3. PREDNISOLONE [Suspect]
     Dosage: 40 MILLIGRAM DAILY;
     Route: 048
     Dates: start: 2012, end: 2012
  4. PREDNISOLONE [Suspect]
     Dosage: 20 MILLIGRAM DAILY;
     Route: 048
     Dates: start: 2012
  5. MORPHINE SULPHATE [Suspect]
     Indication: PSORIATIC ARTHROPATHY
     Dosage: 100 MILLIGRAM DAILY; 20 MG/DAY TO 100 MG/DAY
     Route: 048
     Dates: start: 20120305
  6. CALCIUM W/VITAMIN D [Suspect]
     Indication: OSTEOPOROSIS PROPHYLAXIS
     Dosage: 600 MILLIGRAM DAILY;
     Route: 048
     Dates: start: 20120305
  7. IMUREK [Suspect]
     Indication: PSORIATIC ARTHROPATHY
     Dosage: 100 MILLIGRAM DAILY;
     Route: 048
     Dates: start: 20120305
  8. ERYTHROMYCIN [Suspect]
     Indication: ECZEMA
     Dosage: INTO FACE: 3 TO 5 TIMES A MONTH
     Route: 003
     Dates: start: 20120305
  9. FEMIBION [Suspect]
     Indication: PROPHYLAXIS OF NEURAL TUBE DEFECT
     Dosage: .8 MILLIGRAM DAILY;
     Route: 048
     Dates: start: 20120305
  10. PROGESTERONE [Suspect]
     Indication: ASSISTED FERTILISATION
     Route: 048
     Dates: start: 20120305, end: 2012

REACTIONS (4)
  - Psoriatic arthropathy [Unknown]
  - Device related infection [Unknown]
  - Premature labour [Unknown]
  - Urinary tract infection [Unknown]
